FAERS Safety Report 19331622 (Version 2)
Quarter: 2021Q2

REPORT INFORMATION
  Report Type: Spontaneous
  Country: CZ (occurrence: CZ)
  Receive Date: 20210528
  Receipt Date: 20210611
  Transmission Date: 20210717
  Serious: Yes (Other)
  Sender: FDA-Public Use
  Company Number: NVSC2021CZ083836

PATIENT
  Age: 83 Year
  Sex: Female

DRUGS (2)
  1. BROLUCIZUMAB. [Suspect]
     Active Substance: BROLUCIZUMAB
     Indication: CHOROIDAL NEOVASCULARISATION
     Dosage: UNK
     Route: 065
     Dates: start: 20210202
  2. BROLUCIZUMAB. [Suspect]
     Active Substance: BROLUCIZUMAB
     Indication: AGE-RELATED MACULAR DEGENERATION
     Dosage: UNK
     Route: 065
     Dates: start: 20210304

REACTIONS (6)
  - Intra-ocular injection complication [Not Recovered/Not Resolved]
  - Retinal exudates [Unknown]
  - Visual impairment [Unknown]
  - Headache [Unknown]
  - Intra-ocular injection complication [Recovering/Resolving]
  - Vitritis [Recovered/Resolved]

NARRATIVE: CASE EVENT DATE: 20210202
